FAERS Safety Report 7304828-X (Version None)
Quarter: 2011Q1

REPORT INFORMATION
  Report Type: 
  Country: None (occurrence: None)
  Receive Date: 20110222
  Receipt Date: 20110218
  Transmission Date: 20110831
  Serious: No
  Sender: FDA-Public Use
  Company Number: US-PFIZER INC-2011036663

PATIENT
  Sex: Male
  Weight: 93 kg

DRUGS (1)
  1. LYRICA [Suspect]
     Indication: FIBROMYALGIA
     Dosage: 150 MG, DAILY
     Route: 048
     Dates: start: 20070101, end: 20110101

REACTIONS (1)
  - FATIGUE [None]
